FAERS Safety Report 26057924 (Version 1)
Quarter: 2025Q4

REPORT INFORMATION
  Report Type: Spontaneous
  Country: US (occurrence: US)
  Receive Date: 20251118
  Receipt Date: 20251118
  Transmission Date: 20260117
  Serious: Yes (Other)
  Sender: ALKEM
  Company Number: US-ALKEM LABORATORIES LIMITED-US-ALKEM-2025-12012

PATIENT
  Age: 65 Year
  Sex: Male

DRUGS (30)
  1. ARIPIPRAZOLE [Suspect]
     Active Substance: ARIPIPRAZOLE
     Indication: Psychotic disorder
     Dosage: 7.5 MILLIGRAM, QD, (DAY 3, 6, 7, 8, 9, 10, 11, 14, 15, 16)
     Route: 065
  2. ARIPIPRAZOLE [Suspect]
     Active Substance: ARIPIPRAZOLE
     Dosage: 10 MILLIGRAM, QD (DAY 18, 19, 20, 21, 22, 23)
     Route: 065
  3. ARIPIPRAZOLE [Suspect]
     Active Substance: ARIPIPRAZOLE
     Dosage: 10 MILLIGRAM, QD (DAY 24, 25, 26, 27, 28)
     Route: 065
  4. ARIPIPRAZOLE [Suspect]
     Active Substance: ARIPIPRAZOLE
     Dosage: UNK (RECHALLENGE)
     Route: 065
  5. TRAZODONE [Suspect]
     Active Substance: TRAZODONE HYDROCHLORIDE
     Indication: Psychotic disorder
     Dosage: 25 MILLIGRAM, QD (ON DAY 11, 12, 13, 14, 15, 16, 17)
     Route: 065
  6. TRAZODONE [Suspect]
     Active Substance: TRAZODONE HYDROCHLORIDE
     Dosage: 50 MILLIGRAM, QD (ON DAY 18, 19, 20, 21, 22, 23, 24)
     Route: 065
  7. TRAZODONE [Suspect]
     Active Substance: TRAZODONE HYDROCHLORIDE
     Dosage: 75 MILLIGRAM, QD  (ON DAY 23)
     Route: 065
  8. TRAZODONE [Suspect]
     Active Substance: TRAZODONE HYDROCHLORIDE
     Dosage: 100 MILLIGRAM, QD  (ON DAY 24, 25, 26))
     Route: 065
  9. HALOPERIDOL DECANOATE [Suspect]
     Active Substance: HALOPERIDOL DECANOATE
     Indication: Schizophrenia
     Dosage: UNK
     Route: 065
  10. HALOPERIDOL DECANOATE [Suspect]
     Active Substance: HALOPERIDOL DECANOATE
     Dosage: UNK (LAST INJECTION) 42 DAYS PRIOR TO ADMISSION
     Route: 065
  11. LOXAPINE [Suspect]
     Active Substance: LOXAPINE
     Indication: Psychotic disorder
     Dosage: 10 MILLIGRAM, QD (ON DAY 37)
     Route: 065
  12. LOXAPINE [Suspect]
     Active Substance: LOXAPINE
     Dosage: 20 MILLIGRAM, QD (ON DAY 38)
     Route: 065
  13. LOXAPINE [Suspect]
     Active Substance: LOXAPINE
     Dosage: 30 MILLIGRAM, QD (ON DAY 39, 40, 41, 42, 43, 44, 45, 46, 47, 48, 49, 50, 51)
     Route: 065
  14. LOXAPINE [Suspect]
     Active Substance: LOXAPINE
     Dosage: 40 MILLIGRAM, QD (ON DAY 52, 53, 54, 55, 56, AND 57)
     Route: 065
  15. LOXAPINE [Suspect]
     Active Substance: LOXAPINE
     Dosage: 50 MILLIGRAM, QD (ON DAY 58 AND DAY 59)
     Route: 065
  16. RISPERIDONE [Suspect]
     Active Substance: RISPERIDONE
     Indication: Psychotic disorder
     Dosage: 3 MILLIGRAM, QD (DAY 2, 3, 4, 5, 6, 7, 8, 10, 11, 12, 13 AND DAY 15)
     Route: 065
  17. RISPERIDONE [Suspect]
     Active Substance: RISPERIDONE
     Dosage: 4 MILLIGRAM, QD (DAY 9, DAY 16, 29, 30, 31, 32, 33, 34, 35, AND 36))
     Route: 065
  18. RISPERIDONE [Suspect]
     Active Substance: RISPERIDONE
     Dosage: 2 MILLIGRAM, QD (DAY 14)
     Route: 065
  19. RISPERIDONE [Suspect]
     Active Substance: RISPERIDONE
     Dosage: 1 MILLIGRAM, QD (ON DAY 12, 37, DAY 38)
     Route: 065
  20. RISPERIDONE [Suspect]
     Active Substance: RISPERIDONE
     Dosage: 1 MILLIGRAM, HS DAY 12
     Route: 065
  21. BUMETANIDE [Concomitant]
     Active Substance: BUMETANIDE
     Indication: Product used for unknown indication
     Dosage: 2 MILLIGRAM, QD (ON DAY 21, 22)
     Route: 065
  22. BUMETANIDE [Concomitant]
     Active Substance: BUMETANIDE
     Dosage: 5 MILLIGRAM, QD (ON DAY 23, 24, 28)
     Route: 065
  23. BUMETANIDE [Concomitant]
     Active Substance: BUMETANIDE
     Dosage: 4 MILLIGRAM, QD (ON DAY 25, 26, 27)
     Route: 065
  24. BUMETANIDE [Concomitant]
     Active Substance: BUMETANIDE
     Dosage: 6 MILLIGRAM, QD (ON DAY 29. 30, 31, 32, 33, 34, 35, 36, 37, 38, 39, 40, 41)
     Route: 065
  25. BUMETANIDE [Concomitant]
     Active Substance: BUMETANIDE
     Dosage: 3 MILLIGRAM, QD (ON DAY 46, 47, 48)
     Route: 065
  26. FUROSEMIDE [Concomitant]
     Active Substance: FUROSEMIDE
     Indication: Product used for unknown indication
     Dosage: 40 MILLIGRAM, QD (ON DAY 2, 3, 4, 5, 6, 7, 8, 9, 10, 11, 12, 13, 14, 15, 16, 17, 18, 19, 20, 21
     Route: 065
  27. FUROSEMIDE [Concomitant]
     Active Substance: FUROSEMIDE
     Dosage: 1 MILLIGRAM, QD (ON DAY 5, 6, 7, 8, 9, 10, 13, 14, 15, 16)
     Route: 065
  28. FUROSEMIDE [Concomitant]
     Active Substance: FUROSEMIDE
     Dosage: 3 MILLIGRAM, QD (ON DAY 2, 3, 20, 21, 22, 23)
     Route: 065
  29. FUROSEMIDE [Concomitant]
     Active Substance: FUROSEMIDE
     Dosage: 2 MILLIGRAM, QD (ON DAY 12, 17, 18, 19)
     Route: 065
  30. SPIRONOLACTONE [Concomitant]
     Active Substance: SPIRONOLACTONE
     Indication: Cardiac failure
     Dosage: 12.5 MILLIGRAM, QD (ON DAY 9, 10, 11, 12, 13, 14, 15, 16, 17, 18, 19, 20, 21, 22, 23, 24, 25, 26, 27
     Route: 065

REACTIONS (2)
  - Inappropriate antidiuretic hormone secretion [Unknown]
  - Hyponatraemia [Recovered/Resolved]
